FAERS Safety Report 22339836 (Version 1)
Quarter: 2023Q2

REPORT INFORMATION
  Report Type: Spontaneous
  Country: US (occurrence: US)
  Receive Date: 20230518
  Receipt Date: 20230518
  Transmission Date: 20230722
  Serious: Yes (Other)
  Sender: FDA-Public Use
  Company Number: US-002147023-NVSC2023US113903

PATIENT
  Age: 30 Year
  Sex: Female
  Weight: 79.819 kg

DRUGS (2)
  1. KESIMPTA [Suspect]
     Active Substance: OFATUMUMAB
     Indication: Relapsing multiple sclerosis
     Dosage: 20 MG, QMO (LIQUID)
     Route: 030
     Dates: start: 202206, end: 20230422
  2. KESIMPTA [Suspect]
     Active Substance: OFATUMUMAB
     Indication: Relapsing-remitting multiple sclerosis

REACTIONS (6)
  - Hormone level abnormal [Recovering/Resolving]
  - Irritability [Recovering/Resolving]
  - Menstrual disorder [Recovering/Resolving]
  - Acne [Recovering/Resolving]
  - Adenomyosis [Unknown]
  - Incorrect route of product administration [Unknown]

NARRATIVE: CASE EVENT DATE: 20220601
